FAERS Safety Report 7425021-6 (Version None)
Quarter: 2011Q2

REPORT INFORMATION
  Report Type: 
  Country: None (occurrence: None)
  Receive Date: 20110419
  Receipt Date: 20110407
  Transmission Date: 20111010
  Serious: Yes (Other)
  Sender: FDA-Public Use
  Company Number: US-BAYER-2011-030931

PATIENT
  Sex: Male

DRUGS (3)
  1. LISINOPRIL [Concomitant]
  2. AMLODIPINE [Concomitant]
  3. CIPRO [Suspect]
     Indication: CYSTITIS
     Dosage: 250 MG, QID
     Route: 048
     Dates: start: 20100101, end: 20100101

REACTIONS (2)
  - MUSCULAR WEAKNESS [None]
  - NERVE INJURY [None]
